FAERS Safety Report 18497056 (Version 1)
Quarter: 2020Q4

REPORT INFORMATION
  Report Type: Spontaneous
  Country: GB (occurrence: GB)
  Receive Date: 20201112
  Receipt Date: 20201112
  Transmission Date: 20210114
  Serious: Yes (Disabling)
  Sender: FDA-Public Use
  Company Number: GB-MYLANLABS-2020M1093400

PATIENT
  Age: 92 Year
  Sex: Female
  Weight: 65 kg

DRUGS (9)
  1. CLOBETASOL PROPIONATE. [Concomitant]
     Active Substance: CLOBETASOL PROPIONATE
     Dosage: 1 DOSAGE FORM, QD (APPLY AT NIGHT TO RED INFLAMED AREAS OF SKIN)
     Dates: start: 20200117
  2. DOXYCYCLINE. [Suspect]
     Active Substance: DOXYCYCLINE
     Indication: PRODUCT USED FOR UNKNOWN INDICATION
     Dosage: 100 MILLIGRAM
  3. CARBOMER [Concomitant]
     Active Substance: CARBOMER
     Dosage: USE AS DIRECTED
     Dates: start: 20200317
  4. PARACETAMOL [Concomitant]
     Active Substance: ACETAMINOPHEN
     Dosage: TAKE 1 OR 2 4 TIMES/DAY
     Dates: start: 20200117
  5. DERMOL                             /01330701/ [Concomitant]
     Dosage: USE AS SOAP SUBSTITUTE
     Dates: start: 20200117
  6. LIQUIFILM TEARS [Concomitant]
     Active Substance: POLYVINYL ALCOHOL
     Dosage: USE AS DIRECTED
     Dates: start: 20200117
  7. LANSOPRAZOLE. [Concomitant]
     Active Substance: LANSOPRAZOLE
     Dosage: 1 DOSAGE FORM, QD
     Dates: start: 20200210
  8. FULTIUM D3 [Concomitant]
     Active Substance: CHOLECALCIFEROL
     Dosage: 2 DOSAGE FORM, QD
     Dates: start: 20200117
  9. MOMETASONE [Concomitant]
     Active Substance: MOMETASONE
     Dosage: 1 DOSAGE FORM, QD (APPLY)
     Dates: start: 20200117

REACTIONS (4)
  - Vertigo [Recovered/Resolved]
  - Urinary incontinence [Recovered/Resolved]
  - Hypertension [Recovered/Resolved]
  - Headache [Recovered/Resolved]

NARRATIVE: CASE EVENT DATE: 20201006
